FAERS Safety Report 13190796 (Version 1)
Quarter: 2017Q1

REPORT INFORMATION
  Report Type: Spontaneous
  Country: HR (occurrence: HR)
  Receive Date: 20170206
  Receipt Date: 20170206
  Transmission Date: 20170428
  Serious: Yes (Life-Threatening, Hospitalization, Other)
  Sender: FDA-Public Use
  Company Number: HR-ASTRAZENECA-2017SE11184

PATIENT
  Age: 17 Year
  Sex: Male
  Weight: 80 kg

DRUGS (1)
  1. SEROQUEL [Suspect]
     Active Substance: QUETIAPINE FUMARATE
     Dosage: 3 TABLETS AROUND 1 HOUR
     Route: 048
     Dates: start: 20160422

REACTIONS (4)
  - Tachycardia [Unknown]
  - Toxicity to various agents [Unknown]
  - Somnolence [Unknown]
  - Suicide attempt [Unknown]

NARRATIVE: CASE EVENT DATE: 20160422
